FAERS Safety Report 7397814-5 (Version None)
Quarter: 2011Q2

REPORT INFORMATION
  Report Type: 
  Country: None (occurrence: None)
  Receive Date: 20110406
  Receipt Date: 20110404
  Transmission Date: 20111010
  Serious: Yes (Hospitalization, Disabling)
  Sender: FDA-Public Use
  Company Number: JP-PFIZER INC-2010109895

PATIENT
  Age: 75 Year
  Sex: Male

DRUGS (9)
  1. CHAMPIX [Suspect]
     Indication: SMOKING CESSATION THERAPY
     Dosage: 0.5 MG, 1X/DAY
     Route: 048
     Dates: start: 20100831, end: 20100902
  2. GASPORT D [Concomitant]
     Dosage: 20 MG, 1X/DAY
  3. THEOLONG [Concomitant]
     Dosage: 200 MG, 2X/DAY
  4. BIOFERMIN [Concomitant]
     Dosage: 1 G, 3X/DAY
     Route: 048
  5. CHAMPIX [Suspect]
     Dosage: 0.5 MG, 2X/DAY
     Route: 048
     Dates: start: 20100903, end: 20100906
  6. CHAMPIX [Suspect]
     Dosage: 1 MG, 2X/DAY
     Route: 048
     Dates: start: 20100907, end: 20100913
  7. METHISTA [Concomitant]
     Dosage: 500 MG, 2X/DAY
  8. PLETAL [Concomitant]
     Dosage: 100 MG, 2X/DAY
  9. OLMETEC [Concomitant]
     Dosage: 20 MG, 1X/DAY

REACTIONS (1)
  - ATRIOVENTRICULAR BLOCK [None]
